FAERS Safety Report 5816222-9 (Version None)
Quarter: 2008Q3

REPORT INFORMATION
  Report Type: 
  Country: None (occurrence: None)
  Receive Date: 20080721
  Receipt Date: 20080716
  Transmission Date: 20090109
  Serious: Yes (Life-Threatening, Hospitalization, Other)
  Sender: FDA-Public Use
  Company Number: B0529927A

PATIENT
  Age: 54 Year
  Sex: Male

DRUGS (1)
  1. ALKERAN [Suspect]
     Indication: MULTIPLE MYELOMA
     Dosage: 340MG PER DAY
     Route: 042
     Dates: start: 20070428, end: 20070428

REACTIONS (2)
  - FEBRILE NEUTROPENIA [None]
  - MUCOSAL INFLAMMATION [None]
